FAERS Safety Report 23749536 (Version 2)
Quarter: 2024Q2

REPORT INFORMATION
  Report Type: Spontaneous
  Country: US (occurrence: US)
  Receive Date: 20240416
  Receipt Date: 20240524
  Transmission Date: 20240716
  Serious: No
  Sender: FDA-Public Use
  Company Number: US-TEVA-VS-3146999

PATIENT
  Age: 81 Year
  Sex: Female
  Weight: 40.82 kg

DRUGS (2)
  1. AJOVY [Suspect]
     Active Substance: FREMANEZUMAB-VFRM
     Indication: Migraine
     Dosage: 1 INJECTION ONCE A MONTH
     Route: 065
  2. AJOVY [Suspect]
     Active Substance: FREMANEZUMAB-VFRM

REACTIONS (7)
  - Fatigue [Unknown]
  - Headache [Not Recovered/Not Resolved]
  - Weight decreased [Unknown]
  - Sleep apnoea syndrome [Unknown]
  - Intentional dose omission [Not Recovered/Not Resolved]
  - Eating disorder [Unknown]
  - Migraine [Unknown]
